FAERS Safety Report 8792124 (Version 1)
Quarter: 2012Q4

REPORT INFORMATION
  Report Type: 
  Country: US (occurrence: US)
  Receive Date: 20120918
  Receipt Date: 20120918
  Transmission Date: 20130627
  Serious: Yes (Other)
  Sender: FDA-Public Use
  Company Number: US-COVIDIEN/TYCO HEALTHCARE/MALLINCKRODT-T201203210

PATIENT
  Sex: Female

DRUGS (6)
  1. EXALGO EXTENDED RELEASE [Suspect]
     Indication: PRODUCT USED FOR UNKNOWN INDICATION
     Dosage: 8 mg, 3 tabs at bedtime
     Dates: start: 2012
  2. SOMA [Interacting]
     Dosage: UNK, bid
     Dates: start: 2012
  3. PERCOCET /00867901/ [Concomitant]
     Dosage: 5 mg, four per day
     Dates: end: 2012
  4. CLONAZEPAM [Concomitant]
     Dosage: UNK
  5. LORAZEPAM [Concomitant]
     Dosage: UNK
  6. TRAZODONE [Concomitant]

REACTIONS (7)
  - Drug interaction [Unknown]
  - Drug prescribing error [Unknown]
  - Treatment noncompliance [Unknown]
  - Dizziness [Unknown]
  - Dysarthria [Unknown]
  - Fall [Unknown]
  - Feeling drunk [Unknown]
